FAERS Safety Report 10021546 (Version 1)
Quarter: 2014Q1

REPORT INFORMATION
  Report Type: Spontaneous
  Country: GB (occurrence: GB)
  Receive Date: 20140319
  Receipt Date: 20140319
  Transmission Date: 20141002
  Serious: Yes (Hospitalization, Other)
  Sender: FDA-Public Use
  Company Number: GB-TEVA-468731ISR

PATIENT
  Age: 57 Year
  Sex: Male

DRUGS (19)
  1. SIMVASTATIN [Suspect]
     Route: 065
  2. WARFARIN [Interacting]
     Indication: DEEP VEIN THROMBOSIS
     Dosage: 10MG FOR 2D, THEN 5MG ON 3RD D
     Route: 065
  3. WARFARIN [Interacting]
     Indication: DEEP VEIN THROMBOSIS
     Dosage: 5MG ON 3RD D
     Route: 065
  4. COAMOXICLAV [Interacting]
     Indication: INFECTIVE EXACERBATION OF CHRONIC OBSTRUCTIVE AIRWAYS DISEASE
     Route: 048
  5. FRAGMIN [Suspect]
     Indication: DEEP VEIN THROMBOSIS
     Dosage: 18000 UNITS
     Route: 065
  6. ASPIRIN [Interacting]
     Route: 065
  7. HEPARIN [Suspect]
     Route: 042
  8. QUININE [Concomitant]
     Route: 065
  9. RAMIPRIL [Concomitant]
     Route: 065
  10. CARBOCISTEINE [Concomitant]
     Route: 065
  11. LEVOTHYROXINE SODIUM [Concomitant]
     Route: 065
  12. DILTIAZEM [Concomitant]
     Route: 065
  13. BUDESONIDE [Concomitant]
     Route: 065
  14. FORMOTEROL [Concomitant]
     Route: 065
  15. TIOTROPIUM BROMIDE [Concomitant]
     Route: 065
  16. SALBUTAMOL [Concomitant]
     Dosage: INHALERS
     Route: 055
  17. PREDNISOLONE [Concomitant]
     Indication: INFECTIVE EXACERBATION OF CHRONIC OBSTRUCTIVE AIRWAYS DISEASE
     Route: 065
  18. BENZYLPENICILLIN [Concomitant]
     Indication: CELLULITIS
     Route: 065
  19. FLUCLOXACILLIN [Concomitant]
     Indication: CELLULITIS
     Route: 065

REACTIONS (3)
  - Compartment syndrome [Recovering/Resolving]
  - Drug interaction [Recovering/Resolving]
  - Procedural haemorrhage [Recovering/Resolving]
